FAERS Safety Report 21421230 (Version 8)
Quarter: 2024Q4

REPORT INFORMATION
  Report Type: Spontaneous
  Country: JP (occurrence: JP)
  Receive Date: 20221007
  Receipt Date: 20241120
  Transmission Date: 20250115
  Serious: Yes (Hospitalization, Other)
  Sender: BRISTOL-MYERS SQUIBB COMPANY
  Company Number: JP-ONO-2022JP026985

PATIENT
  Age: 53 Year
  Sex: Female
  Weight: 60.3 kg

DRUGS (5)
  1. OPDIVO [Suspect]
     Active Substance: NIVOLUMAB
     Indication: Gastric cancer
     Dosage: 360 MG, Q3W
     Route: 041
     Dates: start: 20220809, end: 20220809
  2. OXALIPLATIN [Suspect]
     Active Substance: OXALIPLATIN
     Indication: Gastric cancer
     Dosage: 215 MG
     Route: 042
     Dates: start: 20220809, end: 20220809
  3. TS-1 [Suspect]
     Active Substance: GIMERACIL\OTERACIL POTASSIUM\TEGAFUR
     Indication: Gastric cancer
     Dosage: 120 MG
     Route: 048
     Dates: start: 20220809, end: 20220814
  4. RABEPRAZOLE SODIUM [Concomitant]
     Active Substance: RABEPRAZOLE SODIUM
     Route: 048
  5. URSO [Concomitant]
     Active Substance: URSODIOL
     Route: 048

REACTIONS (15)
  - Peritonitis [Unknown]
  - Disseminated intravascular coagulation [Unknown]
  - Septic shock [Unknown]
  - Immune-mediated enterocolitis [Recovered/Resolved]
  - Pain [Unknown]
  - Infusion related reaction [Unknown]
  - Immune-mediated hepatitis [Recovered/Resolved]
  - Peripheral circulatory failure [Unknown]
  - Cytomegalovirus gastritis [Unknown]
  - Impaired healing [Unknown]
  - Gastrointestinal disorder [Recovering/Resolving]
  - Rectal perforation [Unknown]
  - Tumour haemorrhage [Unknown]
  - Anaemia [Unknown]
  - Abdominal abscess [Recovering/Resolving]

NARRATIVE: CASE EVENT DATE: 20220815
